FAERS Safety Report 8898862 (Version 1)
Quarter: 2012Q4

REPORT INFORMATION
  Report Type: 
  Country: CN (occurrence: CN)
  Receive Date: 20121109
  Receipt Date: 20121109
  Transmission Date: 20130627
  Serious: Yes (Life-Threatening)
  Sender: FDA-Public Use
  Company Number: CN-BRISTOL-MYERS SQUIBB COMPANY-17084351

PATIENT
  Age: 33 Year
  Sex: Female
  Weight: 56 kg

DRUGS (5)
  1. ESMOLOL HYDROCHLORIDE [Suspect]
     Route: 042
  2. THIAMAZOLE [Concomitant]
     Route: 042
  3. HYDROCORTISONE [Concomitant]
     Route: 042
  4. NICARDIPINE [Concomitant]
     Route: 042
  5. MIDAZOLAM [Concomitant]

REACTIONS (1)
  - Drug ineffective [Unknown]
